FAERS Safety Report 12328721 (Version 1)
Quarter: 2016Q2

REPORT INFORMATION
  Report Type: Spontaneous
  Country: US (occurrence: US)
  Receive Date: 20160503
  Receipt Date: 20160503
  Transmission Date: 20160815
  Serious: No
  Sender: FDA-Public Use
  Company Number: US-BEH-2015050366

PATIENT
  Sex: Female
  Weight: 60 kg

DRUGS (20)
  1. LAMICTAL [Concomitant]
     Active Substance: LAMOTRIGINE
  2. ADVAIR HFA [Concomitant]
     Active Substance: FLUTICASONE PROPIONATE\SALMETEROL XINAFOATE
  3. ACIPHEX [Concomitant]
     Active Substance: RABEPRAZOLE SODIUM
  4. EPIPEN [Concomitant]
     Active Substance: EPINEPHRINE
  5. SPIRIVA [Concomitant]
     Active Substance: TIOTROPIUM BROMIDE MONOHYDRATE
  6. HIZENTRA [Suspect]
     Active Substance: HUMAN IMMUNOGLOBULIN G
     Indication: IMMUNODEFICIENCY COMMON VARIABLE
     Route: 058
  7. LYRICA [Concomitant]
     Active Substance: PREGABALIN
  8. CLONAZEPAM. [Concomitant]
     Active Substance: CLONAZEPAM
  9. MULTIVITAMIN [Concomitant]
     Active Substance: VITAMINS
  10. CYMBALTA [Concomitant]
     Active Substance: DULOXETINE HYDROCHLORIDE
  11. AMOXICILLIN. [Concomitant]
     Active Substance: AMOXICILLIN
  12. MUCINEX-D [Concomitant]
  13. DIPHENHYDRAMINE. [Concomitant]
     Active Substance: DIPHENHYDRAMINE
  14. LMX [Concomitant]
     Active Substance: LIDOCAINE
  15. BUSPAR [Concomitant]
     Active Substance: BUSPIRONE HYDROCHLORIDE
  16. PLAVIX [Concomitant]
     Active Substance: CLOPIDOGREL BISULFATE
  17. ZYPREXA [Concomitant]
     Active Substance: OLANZAPINE
  18. SEROQUEL [Concomitant]
     Active Substance: QUETIAPINE FUMARATE
  19. ZYRTEC [Concomitant]
     Active Substance: CETIRIZINE HYDROCHLORIDE
  20. CYTOTEC [Concomitant]
     Active Substance: MISOPROSTOL

REACTIONS (2)
  - Infusion site swelling [Unknown]
  - Infusion site mass [Unknown]
